FAERS Safety Report 8821127 (Version 1)
Quarter: 2012Q4

REPORT INFORMATION
  Report Type: 
  Country: GB (occurrence: GB)
  Receive Date: 20121002
  Receipt Date: 20121002
  Transmission Date: 20130627
  Serious: Yes (Other)
  Sender: FDA-Public Use
  Company Number: GB-ARROW-2012-16832

PATIENT
  Sex: Female

DRUGS (1)
  1. ALENDRONATE [Suspect]
     Indication: PRODUCT USED FOR UNKNOWN INDICATION
     Dosage: 70mg once a week before breakfast
     Route: 065

REACTIONS (3)
  - Tooth disorder [Not Recovered/Not Resolved]
  - Condition aggravated [Not Recovered/Not Resolved]
  - Cataract [Not Recovered/Not Resolved]
